FAERS Safety Report 25489494 (Version 1)
Quarter: 2025Q2

REPORT INFORMATION
  Report Type: Spontaneous
  Country: US (occurrence: US)
  Receive Date: 20250627
  Receipt Date: 20250627
  Transmission Date: 20250716
  Serious: No
  Sender: SANOFI AVENTIS
  Company Number: US-SA-2025SA180209

PATIENT
  Age: 57 Year
  Sex: Male

DRUGS (2)
  1. DUPIXENT [Suspect]
     Active Substance: DUPILUMAB
     Indication: Nasal polyps
     Dosage: 300 MG, QOW
     Route: 058
     Dates: start: 20250523
  2. XHANCE [Concomitant]
     Active Substance: FLUTICASONE PROPIONATE

REACTIONS (8)
  - Visual impairment [Unknown]
  - Injection site urticaria [Unknown]
  - Condition aggravated [Unknown]
  - Injection site rash [Unknown]
  - Headache [Unknown]
  - Vision blurred [Unknown]
  - Injection site swelling [Unknown]
  - Condition aggravated [Unknown]

NARRATIVE: CASE EVENT DATE: 20250101
